FAERS Safety Report 9360183 (Version 1)
Quarter: 2013Q2

REPORT INFORMATION
  Report Type: Spontaneous
  Country: US (occurrence: US)
  Receive Date: 20130621
  Receipt Date: 20130621
  Transmission Date: 20140414
  Serious: Yes (Death, Hospitalization, Other)
  Sender: FDA-Public Use
  Company Number: US-SUN PHARMACEUTICAL INDUSTRIES LTD-2013SUN00827

PATIENT
  Age: 29 Year
  Sex: Male

DRUGS (4)
  1. SUMATRIPTAN SUCCINATE TABS 100MG [Suspect]
     Indication: MIGRAINE
     Dosage: 100 MG, UNK, ONE EVERY 2 WEEK
     Route: 048
     Dates: start: 200906, end: 201002
  2. METHYLPHENIDATE [Suspect]
     Indication: PRODUCT USED FOR UNKNOWN INDICATION
     Dosage: 18 MG, OD
     Route: 065
     Dates: start: 2000
  3. METHYLPHENIDATE [Suspect]
     Dosage: 36 MG, UNK
     Route: 065
  4. ADDERALL [Suspect]
     Indication: ATTENTION DEFICIT/HYPERACTIVITY DISORDER
     Dosage: UNK UNK, BID
     Route: 065
     Dates: start: 200906

REACTIONS (5)
  - Coronary artery occlusion [Fatal]
  - Coronary artery disease [Fatal]
  - Myocardial infarction [Fatal]
  - Myalgia [Unknown]
  - Sinus tachycardia [None]
